FAERS Safety Report 9608509 (Version 2)
Quarter: 2013Q4

REPORT INFORMATION
  Report Type: Spontaneous
  Country: CA (occurrence: CA)
  Receive Date: 20131009
  Receipt Date: 20131209
  Transmission Date: 20140711
  Serious: Yes (Other)
  Sender: FDA-Public Use
  Company Number: CA-SA-2013SA097016

PATIENT
  Age: 38 Year
  Sex: Female
  Weight: 58.3 kg

DRUGS (6)
  1. TAXOTERE [Suspect]
     Indication: BREAST CANCER METASTATIC
     Route: 065
  2. PERJETA [Suspect]
     Indication: BREAST CANCER METASTATIC
     Route: 042
     Dates: start: 20130718, end: 20130718
  3. PERJETA [Suspect]
     Indication: BREAST CANCER METASTATIC
     Route: 042
     Dates: start: 20130815, end: 20130815
  4. HERCEPTIN [Suspect]
     Indication: BREAST CANCER METASTATIC
     Route: 065
  5. HERCEPTIN [Suspect]
     Indication: BREAST CANCER METASTATIC
     Route: 065
     Dates: start: 20130816, end: 20130816
  6. TAXOL [Concomitant]

REACTIONS (6)
  - Neuropathy peripheral [Recovered/Resolved]
  - Pruritus [Recovered/Resolved]
  - Muscle tightness [Recovered/Resolved]
  - Pain [Recovered/Resolved]
  - Hot flush [Unknown]
  - Oral pain [Recovering/Resolving]
